FAERS Safety Report 5193067-7 (Version None)
Quarter: 2006Q4

REPORT INFORMATION
  Report Type: 
  Country: None (occurrence: None)
  Receive Date: 20061228
  Receipt Date: 20060404
  Transmission Date: 20070319
  Serious: No
  Sender: FDA-Public Use
  Company Number: US-GLAXOSMITHKLINE-A0600334A

PATIENT
  Age: 59 Year
  Sex: Male
  Weight: 86.4 kg

DRUGS (5)
  1. AVODART [Suspect]
     Indication: BENIGN PROSTATIC HYPERPLASIA
     Dosage: .5MG PER DAY
     Route: 048
     Dates: start: 20050808, end: 20060120
  2. NIASPAN [Concomitant]
     Dosage: 1000MG TWICE PER DAY
     Route: 048
     Dates: start: 20020324
  3. AMBIEN [Concomitant]
     Dosage: 10MG AT NIGHT
     Route: 048
     Dates: start: 20020324
  4. ASPIRIN [Concomitant]
     Indication: PROPHYLAXIS
     Dates: start: 20051219
  5. CRESTOR [Concomitant]
     Dosage: 10MG PER DAY
     Route: 048
     Dates: start: 20050607

REACTIONS (2)
  - BREAST DISCOMFORT [None]
  - BREAST PAIN [None]
